FAERS Safety Report 20382695 (Version 1)
Quarter: 2022Q1

REPORT INFORMATION
  Report Type: Spontaneous
  Country: US (occurrence: US)
  Receive Date: 20220127
  Receipt Date: 20220127
  Transmission Date: 20220423
  Serious: Yes (Death)
  Sender: FDA-Public Use
  Company Number: US-OCTA-NGAM00622US

PATIENT
  Age: 71 Year
  Sex: Female
  Weight: 58.05 kg

DRUGS (5)
  1. PANZYGA [Suspect]
     Active Substance: HUMAN IMMUNOGLOBULIN G
     Indication: Chronic inflammatory demyelinating polyradiculoneuropathy
     Route: 042
     Dates: start: 20211213, end: 20211213
  2. Advair Diskus 500-50mcg/dose [Concomitant]
     Indication: Product used for unknown indication
  3. Albuterol 2.5mg/3mL [Concomitant]
     Indication: Product used for unknown indication
  4. Incruse Ellipta 62.5 mcg/inh [Concomitant]
     Indication: Product used for unknown indication
  5. Vitamin D3 125mcg (5000U) [Concomitant]
     Indication: Product used for unknown indication

REACTIONS (1)
  - Death [Fatal]

NARRATIVE: CASE EVENT DATE: 20211214
